FAERS Safety Report 10328908 (Version 1)
Quarter: 2014Q3

REPORT INFORMATION
  Report Type: Spontaneous
  Country: US (occurrence: None)
  Receive Date: 20140718
  Receipt Date: 20140718
  Transmission Date: 20150326
  Serious: No
  Sender: FDA-Public Use
  Company Number: None

PATIENT
  Age: 54 Year
  Sex: Female
  Weight: 102 kg

DRUGS (1)
  1. LITHIUM [Suspect]
     Active Substance: LITHIUM CARBONATE
     Route: 048
     Dates: start: 20140714

REACTIONS (2)
  - Incorrect dose administered [None]
  - Product label issue [None]

NARRATIVE: CASE EVENT DATE: 20140714
